FAERS Safety Report 5067584-4 (Version None)
Quarter: 2006Q3

REPORT INFORMATION
  Report Type: 
  Country: None (occurrence: None)
  Receive Date: 20060717
  Receipt Date: 20060405
  Transmission Date: 20061208
  Serious: Yes (Other)
  Sender: FDA-Public Use
  Company Number: 2006049151

PATIENT
  Age: 60 Year
  Sex: Female
  Weight: 63.5036 kg

DRUGS (1)
  1. MACUGEN [Suspect]
     Indication: MACULAR DEGENERATION
     Dates: start: 20050101

REACTIONS (5)
  - ABNORMAL SENSATION IN EYE [None]
  - EYE HAEMORRHAGE [None]
  - INJURY [None]
  - INTRAOCULAR PRESSURE INCREASED [None]
  - STOMACH DISCOMFORT [None]
